FAERS Safety Report 6161740-X (Version None)
Quarter: 2009Q2

REPORT INFORMATION
  Report Type: 
  Country: None (occurrence: None)
  Receive Date: 20090421
  Receipt Date: 20090408
  Transmission Date: 20091009
  Serious: Yes (Other)
  Sender: FDA-Public Use
  Company Number: US-ROCHE-587127

PATIENT
  Sex: Female
  Weight: 49.9 kg

DRUGS (5)
  1. BONIVA [Suspect]
     Indication: OSTEOPOROSIS
     Route: 048
     Dates: start: 20080907, end: 20080910
  2. PREVACID [Concomitant]
  3. MIACALCIN [Concomitant]
  4. XANAX [Concomitant]
  5. FELDENE [Concomitant]
     Dates: start: 20050101

REACTIONS (8)
  - ARTHRALGIA [None]
  - DEHYDRATION [None]
  - ERYTHEMA [None]
  - HEADACHE [None]
  - NAUSEA [None]
  - PAIN [None]
  - PYREXIA [None]
  - VOMITING [None]
